FAERS Safety Report 9465916 (Version 1)
Quarter: 2013Q3

REPORT INFORMATION
  Report Type: Spontaneous
  Country: US (occurrence: US)
  Receive Date: 20130820
  Receipt Date: 20130820
  Transmission Date: 20140515
  Serious: Yes (Hospitalization)
  Sender: FDA-Public Use
  Company Number: US-ELI_LILLY_AND_COMPANY-US201308004083

PATIENT
  Sex: Male

DRUGS (5)
  1. EFFIENT [Suspect]
     Indication: STENT PLACEMENT
     Dosage: 10 MG, QD
     Dates: start: 20130517, end: 20130517
  2. CARVEDILOL [Concomitant]
  3. TORSEMIDE [Concomitant]
     Indication: DIURETIC THERAPY
  4. NOVOLIN GE 30/70 [Concomitant]
  5. NOVOLIN R [Concomitant]
     Indication: DIABETES MELLITUS

REACTIONS (4)
  - Renal failure [Recovering/Resolving]
  - Electrolyte imbalance [Recovering/Resolving]
  - Blood glucose increased [Unknown]
  - Gait disturbance [Recovering/Resolving]
